FAERS Safety Report 6401017-8 (Version None)
Quarter: 2009Q4

REPORT INFORMATION
  Report Type: 
  Country: None (occurrence: None)
  Receive Date: 20091013
  Receipt Date: 20091013
  Transmission Date: 20100525
  Serious: Yes (Hospitalization)
  Sender: FDA-Public Use
  Company Number: None

PATIENT
  Sex: Female
  Weight: 98.4 kg

DRUGS (7)
  1. CYCLOPHOSPHAMIDE [Suspect]
     Dosage: 13125 MG
  2. DOXORUBICIN HCL [Suspect]
     Dosage: 316.8 MG
  3. G-CSF (FILGRASTIM, AMGEN) [Suspect]
     Dosage: 43200 MCG
  4. TAXOL [Suspect]
     Dosage: 352 MG
  5. NEULASTA [Suspect]
     Dosage: 6 MG
  6. HERCEPTIN [Suspect]
     Dosage: 353 MG
  7. BACTRIM DS [Suspect]
     Dosage: 30 MG

REACTIONS (2)
  - BREAST ABSCESS [None]
  - STAPHYLOCOCCAL ABSCESS [None]
